FAERS Safety Report 11169733 (Version 1)
Quarter: 2015Q2

REPORT INFORMATION
  Report Type: Spontaneous
  Country: US (occurrence: None)
  Receive Date: 20150604
  Receipt Date: 20150604
  Transmission Date: 20150821
  Serious: Yes (Hospitalization)
  Sender: FDA-Public Use
  Company Number: UCM201505-000369

PATIENT
  Age: 24 Year
  Sex: Female

DRUGS (3)
  1. COCAINE [Suspect]
     Active Substance: COCAINE
  2. LAMOTRIGINE (LAMOTRIGINE) (LAMOTRIGINE) [Suspect]
     Active Substance: LAMOTRIGINE
  3. ARIPIPRAZOLE. [Suspect]
     Active Substance: ARIPIPRAZOLE
     Indication: BIPOLAR DISORDER

REACTIONS (2)
  - Intentional overdose [None]
  - Serotonin syndrome [None]
